FAERS Safety Report 8572763-5 (Version None)
Quarter: 2012Q3

REPORT INFORMATION
  Report Type: 
  Country: None (occurrence: None)
  Receive Date: 20120806
  Receipt Date: 20120724
  Transmission Date: 20120928
  Serious: Yes (Hospitalization, Other)
  Sender: FDA-Public Use
  Company Number: KR-AMGEN-KORSP2012048037

PATIENT
  Age: 36 Year
  Sex: Female

DRUGS (1)
  1. ETANERCEPT [Suspect]
     Indication: RHEUMATOID ARTHRITIS
     Dosage: 25 MG, 2X/WEEK

REACTIONS (2)
  - ORGANISING PNEUMONIA [None]
  - SYSTEMIC LUPUS ERYTHEMATOSUS [None]
